FAERS Safety Report 7647142-5 (Version None)
Quarter: 2011Q3

REPORT INFORMATION
  Report Type: 
  Country: None (occurrence: None)
  Receive Date: 20110729
  Receipt Date: 20110729
  Transmission Date: 20111222
  Serious: No
  Sender: FDA-Public Use
  Company Number: None

PATIENT
  Age: 58 Year
  Sex: Female
  Weight: 55.3388 kg

DRUGS (3)
  1. TRAMADOL HCL [Suspect]
     Indication: NEURALGIA
     Dosage: 120-50MG 1-2 EVERY 6 HRS ORAL
     Route: 048
     Dates: start: 20110712, end: 20110718
  2. TRAMADOL HCL [Suspect]
     Indication: BONE DISORDER
     Dosage: 120-50MG 1-2 EVERY 6 HRS ORAL
     Route: 048
     Dates: start: 20110712, end: 20110718
  3. TRAMADOL HCL [Suspect]
     Indication: BACK PAIN
     Dosage: 120-50MG 1-2 EVERY 6 HRS ORAL
     Route: 048
     Dates: start: 20110712, end: 20110718

REACTIONS (3)
  - DRUG INEFFECTIVE [None]
  - PRODUCT SUBSTITUTION ISSUE [None]
  - ECONOMIC PROBLEM [None]
